FAERS Safety Report 5695349-9 (Version None)
Quarter: 2008Q2

REPORT INFORMATION
  Report Type: 
  Country: None (occurrence: None)
  Receive Date: 20080404
  Receipt Date: 20080326
  Transmission Date: 20081010
  Serious: Yes (Death)
  Sender: FDA-Public Use
  Company Number: JP-MERCK-0803USA04459

PATIENT
  Age: 91 Year
  Sex: Male
  Weight: 36 kg

DRUGS (8)
  1. STROMECTOL [Suspect]
     Route: 048
     Dates: start: 20080301, end: 20080301
  2. STROMECTOL [Suspect]
     Route: 048
     Dates: start: 20080301, end: 20080301
  3. STROMECTOL [Suspect]
     Route: 048
     Dates: start: 20080301, end: 20080301
  4. STROMECTOL [Suspect]
     Route: 048
     Dates: start: 20080324, end: 20080324
  5. MEROPEN [Concomitant]
     Route: 042
     Dates: start: 20080303, end: 20080324
  6. BISOLVON [Concomitant]
     Route: 065
     Dates: start: 20080303, end: 20080324
  7. GAMMA BENZENE HEXACHLORIDE [Concomitant]
     Route: 065
     Dates: start: 20080303, end: 20080324
  8. EURAX [Concomitant]
     Route: 061
     Dates: start: 20080303, end: 20080324

REACTIONS (5)
  - BODY TEMPERATURE DECREASED [None]
  - CARDIAC ARREST [None]
  - HAEMATURIA [None]
  - LIVER DISORDER [None]
  - WHITE BLOOD CELL COUNT INCREASED [None]
